FAERS Safety Report 25329817 (Version 1)
Quarter: 2025Q2

REPORT INFORMATION
  Report Type: Report from Study
  Country: US (occurrence: US)
  Receive Date: 20250519
  Receipt Date: 20250519
  Transmission Date: 20250716
  Serious: Yes (Hospitalization, Other)
  Sender: TAKEDA
  Company Number: US-TAKEDA-2023TUS003530

PATIENT
  Sex: Female

DRUGS (26)
  1. PONATINIB [Suspect]
     Active Substance: PONATINIB
     Indication: Acute lymphocytic leukaemia
     Dosage: 30 MILLIGRAM, QD
  2. PONATINIB [Suspect]
     Active Substance: PONATINIB
     Dosage: 15 MILLIGRAM, QD
  3. PONATINIB [Suspect]
     Active Substance: PONATINIB
     Dosage: 15 MILLIGRAM, QD
  4. PONATINIB [Suspect]
     Active Substance: PONATINIB
     Dosage: 15 MILLIGRAM, QD
  5. POTASSIUM [Concomitant]
     Active Substance: POTASSIUM
  6. BLINCYTO [Concomitant]
     Active Substance: BLINATUMOMAB
  7. TRAMADOL HCL [Concomitant]
     Active Substance: TRAMADOL HYDROCHLORIDE
  8. ATOVAQUONE [Concomitant]
     Active Substance: ATOVAQUONE
  9. OXYCODONE HYDROCHLORIDE [Concomitant]
     Active Substance: OXYCODONE HYDROCHLORIDE
  10. ALPRAZOLAM [Concomitant]
     Active Substance: ALPRAZOLAM
  11. TEMAZEPAM [Concomitant]
     Active Substance: TEMAZEPAM
  12. LUPRON DEPOT [Concomitant]
     Active Substance: LEUPROLIDE ACETATE
  13. SENNA [Concomitant]
     Active Substance: SENNOSIDES
  14. ZOFRAN [Concomitant]
     Active Substance: ONDANSETRON HYDROCHLORIDE
  15. MIRALAX [Concomitant]
     Active Substance: POLYETHYLENE GLYCOL 3350
  16. ACYCLOVIR [Concomitant]
     Active Substance: ACYCLOVIR
  17. PANTOPRAZOLE SODIUM [Concomitant]
     Active Substance: PANTOPRAZOLE SODIUM
  18. IRBESARTAN [Concomitant]
     Active Substance: IRBESARTAN
  19. NIFEDIPINE [Concomitant]
     Active Substance: NIFEDIPINE
  20. URSODIOL [Concomitant]
     Active Substance: URSODIOL
  21. B complex with c [Concomitant]
  22. FUROSEMIDE [Concomitant]
     Active Substance: FUROSEMIDE
  23. BUTALBITAL AND ACETAMINOPHEN [Concomitant]
     Active Substance: ACETAMINOPHEN\BUTALBITAL
  24. BACTRIM [Concomitant]
     Active Substance: SULFAMETHOXAZOLE\TRIMETHOPRIM
  25. IRON [Concomitant]
     Active Substance: IRON
  26. FERRIC POLYSACCHARIDE COMPLEX [Concomitant]
     Active Substance: FERRIC POLYSACCHARIDE COMPLEX

REACTIONS (8)
  - Headache [Unknown]
  - Pyrexia [Unknown]
  - Malignant melanoma [Unknown]
  - Splinter haemorrhages [Unknown]
  - Product use issue [Unknown]
  - Product dose omission issue [Unknown]
  - Dry skin [Unknown]
  - Hepatic enzyme increased [Recovered/Resolved]
